FAERS Safety Report 24549864 (Version 1)
Quarter: 2024Q4

REPORT INFORMATION
  Report Type: Report from Study
  Country: CA (occurrence: CA)
  Receive Date: 20241025
  Receipt Date: 20241025
  Transmission Date: 20250115
  Serious: Yes (Other)
  Sender: BIOCON
  Company Number: CA-BIOCON BIOLOGICS LIMITED-BBL2024007850

PATIENT

DRUGS (2)
  1. HULIO [Suspect]
     Active Substance: ADALIMUMAB-FKJP
     Indication: Rheumatoid arthritis
     Dosage: 40 MILLIGRAM, Q2W (SOLUTION)
     Route: 058
  2. HULIO [Suspect]
     Active Substance: ADALIMUMAB-FKJP
     Dosage: 40 MILLIGRAM (SOLUTION)
     Route: 058

REACTIONS (6)
  - Symptom recurrence [Unknown]
  - Rheumatoid arthritis [Unknown]
  - Insurance issue [Unknown]
  - Product dose omission issue [Unknown]
  - Product quality issue [Unknown]
  - Drug ineffective [Unknown]
